FAERS Safety Report 9911180 (Version 3)
Quarter: 2014Q2

REPORT INFORMATION
  Report Type: Spontaneous
  Country: US (occurrence: US)
  Receive Date: 20140219
  Receipt Date: 20140513
  Transmission Date: 20141212
  Serious: Yes (Other)
  Sender: FDA-Public Use
  Company Number: US-TEVA-463554USA

PATIENT
  Age: 46 Year
  Sex: Female
  Weight: 70.37 kg

DRUGS (1)
  1. PARAGARD 380A [Suspect]
     Indication: CONTRACEPTION
     Route: 015
     Dates: start: 2007, end: 20140213

REACTIONS (4)
  - Device dislocation [Recovered/Resolved]
  - Embedded device [Recovered/Resolved]
  - Menorrhagia [Unknown]
  - Abdominal pain [Recovered/Resolved]
